FAERS Safety Report 8021741-3 (Version None)
Quarter: 2012Q1

REPORT INFORMATION
  Report Type: 
  Country: None (occurrence: None)
  Receive Date: 20120104
  Receipt Date: 20120103
  Transmission Date: 20120608
  Serious: Yes (Death)
  Sender: FDA-Public Use
  Company Number: PHHY2011CA111329

PATIENT
  Sex: Male

DRUGS (14)
  1. ADVAIR DISKUS 100/50 [Concomitant]
     Dosage: UNK UKN, UNK
  2. LOPRESSOR [Concomitant]
     Dosage: UNK UKN, UNK
  3. ASPIRIN [Concomitant]
     Dosage: UNK UKN, UNK
  4. WELLBUTRIN [Concomitant]
     Dosage: UNK UKN, UNK
  5. CRESTOR [Concomitant]
     Dosage: UNK UKN, UNK
  6. SYNTHROID [Concomitant]
     Dosage: UNK UKN, UNK
  7. ARICEPT [Concomitant]
     Dosage: UNK UKN, UNK
  8. ZOLEDRONOC ACID [Suspect]
     Dosage: UNK UKN, UNK
     Route: 042
     Dates: start: 20110316
  9. CALCIUM ACETATE [Concomitant]
     Dosage: UNK UKN, UNK
  10. ZOLEDRONOC ACID [Suspect]
     Dosage: UNK UKN, UNK
     Route: 042
     Dates: start: 20100324
  11. VITAMIN D [Concomitant]
     Dosage: UNK UKN, UNK
  12. ZOLEDRONOC ACID [Suspect]
     Indication: OSTEOPOROSIS
     Dosage: UNK UKN, UNK
     Route: 042
     Dates: start: 20090318
  13. VITAMIN B-12 [Concomitant]
     Dosage: UNK UKN, UNK
  14. MICARDIS [Concomitant]
     Dosage: UNK UKN, UNK

REACTIONS (1)
  - DEATH [None]
